FAERS Safety Report 17488799 (Version 3)
Quarter: 2021Q1

REPORT INFORMATION
  Report Type: Report from Study
  Country: US (occurrence: US)
  Receive Date: 20200303
  Receipt Date: 20210106
  Transmission Date: 20210419
  Serious: Yes (Death)
  Sender: FDA-Public Use
  Company Number: NVSC2020US060966

PATIENT
  Age: 64 Year
  Sex: Male

DRUGS (2)
  1. MAYZENT [Suspect]
     Active Substance: SIPONIMOD
     Dosage: 2 MG, QD
     Route: 048
  2. MAYZENT [Suspect]
     Active Substance: SIPONIMOD
     Indication: MULTIPLE SCLEROSIS
     Dosage: 2 MG, QD
     Route: 048
     Dates: start: 20191023

REACTIONS (2)
  - Death [Fatal]
  - White blood cell count decreased [Unknown]

NARRATIVE: CASE EVENT DATE: 20201228
